FAERS Safety Report 7479906-5 (Version None)
Quarter: 2011Q2

REPORT INFORMATION
  Report Type: 
  Country: None (occurrence: None)
  Receive Date: 20110516
  Receipt Date: 20110505
  Transmission Date: 20111010
  Serious: Yes (Hospitalization)
  Sender: FDA-Public Use
  Company Number: US-BIOGENIDEC-2010BI006224

PATIENT
  Age: 54 Year
  Sex: Female

DRUGS (1)
  1. TYSABRI [Suspect]
     Indication: MULTIPLE SCLEROSIS
     Route: 042
     Dates: start: 20091116

REACTIONS (10)
  - MULTIPLE SCLEROSIS RELAPSE [None]
  - ENDODONTIC PROCEDURE [None]
  - CHEST DISCOMFORT [None]
  - DYSPNOEA [None]
  - DERMATITIS CONTACT [None]
  - APHASIA [None]
  - FLUSHING [None]
  - CLOSTRIDIUM DIFFICILE COLITIS [None]
  - PAIN IN EXTREMITY [None]
  - FATIGUE [None]
